FAERS Safety Report 6009152-3 (Version None)
Quarter: 2008Q4

REPORT INFORMATION
  Report Type: 
  Country: None (occurrence: None)
  Receive Date: 20081216
  Receipt Date: 20081208
  Transmission Date: 20090506
  Serious: Yes (Other)
  Sender: FDA-Public Use
  Company Number: TPA2008A02084

PATIENT

DRUGS (3)
  1. ACTOS [Suspect]
     Dosage: PER ORAL
     Route: 048
     Dates: start: 20060101
  2. METFORMIN HCL [Concomitant]
  3. GLYBURIDE [Concomitant]

REACTIONS (1)
  - HEPATIC CIRRHOSIS [None]
